FAERS Safety Report 19042410 (Version 5)
Quarter: 2021Q3

REPORT INFORMATION
  Report Type: Report from Study
  Country: US (occurrence: US)
  Receive Date: 20210322
  Receipt Date: 20210805
  Transmission Date: 20211014
  Serious: Yes (Hospitalization)
  Sender: FDA-Public Use
  Company Number: US-OTSUKA-2021_009198

PATIENT
  Sex: Female

DRUGS (1)
  1. CEDAZURIDINE AND DECITABINE [Suspect]
     Active Substance: CEDAZURIDINE\DECITABINE
     Indication: CHRONIC MYELOMONOCYTIC LEUKAEMIA
     Dosage: 135 MG (35 MG DECITABINE AND 100 MG CEDAZURIDINE) QD ON DAYS 1?5 OF EVERY 28 DAY CYCLE
     Route: 048
     Dates: start: 20210203

REACTIONS (5)
  - Blood count abnormal [Recovered/Resolved]
  - Vomiting [Not Recovered/Not Resolved]
  - Malaise [Recovered/Resolved]
  - Hip fracture [Unknown]
  - Femur fracture [Unknown]
